FAERS Safety Report 6866906-9 (Version None)
Quarter: 2010Q2

REPORT INFORMATION
  Report Type: 
  Country: None (occurrence: None)
  Receive Date: 20100610
  Receipt Date: 20091027
  Transmission Date: 20101027
  Serious: No
  Sender: FDA-Public Use
  Company Number: 2009SP033938

PATIENT
  Age: 36 Year
  Sex: Female

DRUGS (7)
  1. SAPHRIS [Suspect]
     Indication: HALLUCINATION, AUDITORY
     Dosage: 5 MG; BID; PO
     Route: 048
     Dates: start: 20091013, end: 20091019
  2. SAPHRIS [Suspect]
     Indication: SCHIZOAFFECTIVE DISORDER
     Dosage: 5 MG; BID; PO
     Route: 048
     Dates: start: 20091013, end: 20091019
  3. ATIVAN [Concomitant]
  4. VISTARIL [Concomitant]
  5. ROZEREM [Concomitant]
  6. SEROQUEL [Concomitant]
  7. INVEGA [Concomitant]

REACTIONS (1)
  - HYPOAESTHESIA [None]
